FAERS Safety Report 18379419 (Version 3)
Quarter: 2021Q1

REPORT INFORMATION
  Report Type: Spontaneous
  Country: CA (occurrence: CA)
  Receive Date: 20201013
  Receipt Date: 20210224
  Transmission Date: 20210419
  Serious: Yes (Disabling)
  Sender: FDA-Public Use
  Company Number: CA-ASTRAZENECA-2020SF29921

PATIENT
  Age: 48 Year
  Sex: Male
  Weight: 67 kg

DRUGS (2)
  1. SYMBICORT [Suspect]
     Active Substance: BUDESONIDE\FORMOTEROL FUMARATE DIHYDRATE
     Indication: ASTHMA
     Dosage: 200 UG, 2 INHALATIONS TWO TIMES A DAY
     Route: 055
     Dates: start: 20171215, end: 20190202
  2. VENTOLIN [Concomitant]
     Active Substance: ALBUTEROL SULFATE

REACTIONS (33)
  - Alopecia [Recovered/Resolved]
  - Pruritus [Recovered/Resolved]
  - Tinea pedis [Recovered/Resolved]
  - Pharyngitis [Recovered/Resolved]
  - Muscle spasms [Recovered/Resolved]
  - Throat irritation [Recovered/Resolved]
  - Ear infection [Recovered/Resolved]
  - Bone disorder [Recovered/Resolved]
  - Dysphonia [Recovered/Resolved]
  - Secretion discharge [Recovered/Resolved]
  - Dry mouth [Recovered/Resolved]
  - Abdominal tenderness [Recovered/Resolved]
  - Chest discomfort [Recovered/Resolved]
  - Palpitations [Recovered/Resolved]
  - Oral infection [Recovered/Resolved]
  - Cough [Recovered/Resolved]
  - Heart rate increased [Recovered/Resolved]
  - Skin atrophy [Recovered/Resolved]
  - Swelling [Recovered/Resolved]
  - Heart rate irregular [Recovered/Resolved]
  - Hot flush [Recovered/Resolved]
  - Fatigue [Recovered/Resolved]
  - Dyspnoea [Recovered/Resolved]
  - Vulvovaginal mycotic infection [Recovered/Resolved]
  - Abdominal distension [Recovered/Resolved]
  - Dizziness [Recovered/Resolved]
  - Ecchymosis [Recovered/Resolved]
  - Tremor [Recovered/Resolved]
  - Pyrexia [Recovered/Resolved]
  - Contusion [Recovered/Resolved]
  - Oropharyngeal pain [Recovered/Resolved]
  - Rash [Recovered/Resolved]
  - Agitation [Recovered/Resolved]

NARRATIVE: CASE EVENT DATE: 20171216
